FAERS Safety Report 10014798 (Version 1)
Quarter: 2014Q1

REPORT INFORMATION
  Report Type: Spontaneous
  Country: IL (occurrence: IL)
  Receive Date: 20140317
  Receipt Date: 20140317
  Transmission Date: 20141002
  Serious: Yes (Death, Hospitalization)
  Sender: FDA-Public Use
  Company Number: IL-SHIRE-IL201400519

PATIENT
  Sex: 0

DRUGS (1)
  1. VPRIV [Suspect]
     Indication: PRODUCT USED FOR UNKNOWN INDICATION
     Dosage: 4800 IU, OTHER (PER MONTH)
     Route: 041
     Dates: start: 201108

REACTIONS (6)
  - Sepsis [Fatal]
  - Fall [Recovered/Resolved]
  - Chest injury [Not Recovered/Not Resolved]
  - Head injury [Not Recovered/Not Resolved]
  - General physical health deterioration [Unknown]
  - Renal failure [Unknown]
